FAERS Safety Report 17173268 (Version 1)
Quarter: 2019Q4

REPORT INFORMATION
  Report Type: Spontaneous
  Country: GB (occurrence: GB)
  Receive Date: 20191218
  Receipt Date: 20191218
  Transmission Date: 20200122
  Serious: Yes (Other)
  Sender: FDA-Public Use
  Company Number: GB-FERRINGPH-2019FE08338

PATIENT
  Sex: Male

DRUGS (2)
  1. DESMOPRESSIN [Suspect]
     Active Substance: DESMOPRESSIN
     Indication: DYSURIA
     Dosage: 0.5 MG
     Route: 065
  2. DIAZEPAM. [Concomitant]
     Active Substance: DIAZEPAM

REACTIONS (25)
  - Confusional state [Recovering/Resolving]
  - Vision blurred [Recovering/Resolving]
  - Tremor [Recovering/Resolving]
  - Decreased appetite [Recovering/Resolving]
  - Aggression [Recovering/Resolving]
  - Suicidal behaviour [Recovering/Resolving]
  - Dehydration [Recovering/Resolving]
  - Abdominal pain upper [Recovering/Resolving]
  - Diarrhoea [Recovering/Resolving]
  - Vomiting [Recovering/Resolving]
  - Memory impairment [Recovering/Resolving]
  - Hypoaesthesia [Recovering/Resolving]
  - Urinary retention [Recovering/Resolving]
  - Disorientation [Recovering/Resolving]
  - Dizziness [Recovering/Resolving]
  - Dry mouth [Recovering/Resolving]
  - Feeding disorder [Recovering/Resolving]
  - Lethargy [Recovering/Resolving]
  - Listless [Recovering/Resolving]
  - Product use in unapproved indication [Recovered/Resolved]
  - Headache [Recovering/Resolving]
  - Suicidal ideation [Recovering/Resolving]
  - Asthenia [Recovering/Resolving]
  - Hallucination [Recovering/Resolving]
  - Palpitations [Recovering/Resolving]
